FAERS Safety Report 5373434-9 (Version None)
Quarter: 2007Q2

REPORT INFORMATION
  Report Type: 
  Country: None (occurrence: None)
  Receive Date: 20070626
  Receipt Date: 20070626
  Transmission Date: 20071010
  Serious: Yes (Other)
  Sender: FDA-Public Use
  Company Number: None

PATIENT
  Sex: Female

DRUGS (10)
  1. REVLIMID [Suspect]
     Indication: MYELODYSPLASTIC SYNDROME
     Dosage: 5MG  DAILY 21D/28D  PO
     Route: 048
  2. WARFARIN SODIUM [Concomitant]
  3. ALLOPURINOL [Concomitant]
  4. COLCHICINE [Concomitant]
  5. QVAR 40 [Concomitant]
  6. ALPHAGEN EYE DROP [Concomitant]
  7. LISINOPRIL [Concomitant]
  8. LEVOTHROID [Concomitant]
  9. LOVASTATIN [Concomitant]
  10. FAMOTADINE [Concomitant]

REACTIONS (2)
  - NEUTROPENIA [None]
  - THROMBOCYTOPENIA [None]
